FAERS Safety Report 15564484 (Version 2)
Quarter: 2018Q4

REPORT INFORMATION
  Report Type: Spontaneous
  Country: JP (occurrence: JP)
  Receive Date: 20181030
  Receipt Date: 20181127
  Transmission Date: 20190205
  Serious: Yes (Hospitalization, Other)
  Sender: FDA-Public Use
  Company Number: JP-009507513-1810JPN013015

PATIENT
  Age: 70 Year
  Sex: Female

DRUGS (2)
  1. SITAGLIPTIN PHOSPHATE [Suspect]
     Active Substance: SITAGLIPTIN PHOSPHATE
     Indication: TYPE 2 DIABETES MELLITUS
     Dosage: UNK
     Route: 048
     Dates: start: 2010
  2. THERAPY UNSPECIFIED [Suspect]
     Active Substance: UNSPECIFIED INGREDIENT

REACTIONS (2)
  - Anti-thyroid antibody positive [Unknown]
  - Fulminant type 1 diabetes mellitus [Unknown]
